FAERS Safety Report 4565193-4 (Version None)
Quarter: 2005Q1

REPORT INFORMATION
  Report Type: 
  Country: None (occurrence: None)
  Receive Date: 20050127
  Receipt Date: 20050127
  Transmission Date: 20050727
  Serious: Yes (Life-Threatening, Hospitalization, Disabling)
  Sender: FDA-Public Use
  Company Number: None

PATIENT
  Age: 77 Year
  Sex: Male
  Weight: 88.4514 kg

DRUGS (6)
  1. LIPITOR [Suspect]
     Indication: BLOOD CHOLESTEROL INCREASED
     Dosage: 10 MG 1/DAY
     Route: 048
     Dates: start: 19980706, end: 20041205
  2. CELEBREX [Suspect]
     Indication: ARTHRITIS
     Dosage: 100 MG 1-DAILY
     Route: 048
     Dates: start: 19990513, end: 20020418
  3. ZOCOR [Suspect]
     Indication: BLOOD CHOLESTEROL INCREASED
     Dosage: 20 MG - 1 / DAY
     Dates: start: 20040909, end: 20041127
  4. PREVACID [Concomitant]
  5. TIMOLOL MALEATE [Concomitant]
     Route: 047
  6. PERCOCET [Concomitant]

REACTIONS (10)
  - ARTERITIS [None]
  - ARTHRALGIA [None]
  - BACK PAIN [None]
  - HYPOTONIA [None]
  - JOINT SWELLING [None]
  - MUSCULOSKELETAL STIFFNESS [None]
  - MYOCARDIAL INFARCTION [None]
  - OEDEMA PERIPHERAL [None]
  - RASH GENERALISED [None]
  - RASH PRURITIC [None]
